FAERS Safety Report 24638409 (Version 1)
Quarter: 2024Q4

REPORT INFORMATION
  Report Type: Spontaneous
  Country: PT (occurrence: PT)
  Receive Date: 20241119
  Receipt Date: 20241119
  Transmission Date: 20250115
  Serious: Yes (Other)
  Sender: REGENERON
  Company Number: PT-BAYER-2024A162711

PATIENT
  Age: 57 Year
  Sex: Female

DRUGS (1)
  1. EYLEA HD [Suspect]
     Active Substance: AFLIBERCEPT
     Indication: Macular oedema
     Dosage: UNK, 114.3 MG/ML, SOLUTION FOR INJECTION
     Route: 031

REACTIONS (1)
  - Macular degeneration [Unknown]
